FAERS Safety Report 14138105 (Version 1)
Quarter: 2017Q4

REPORT INFORMATION
  Report Type: Report from Study
  Country: US (occurrence: US)
  Receive Date: 20171027
  Receipt Date: 20171027
  Transmission Date: 20180321
  Serious: Yes (Life-Threatening, Hospitalization, Other)
  Sender: FDA-Public Use
  Company Number: US-EISAI MEDICAL RESEARCH-EC-2017-026188

PATIENT
  Sex: Female

DRUGS (4)
  1. LENVIMA [Suspect]
     Active Substance: LENVATINIB
     Route: 048
     Dates: start: 20170701, end: 201709
  2. FOSAMAX [Suspect]
     Active Substance: ALENDRONATE SODIUM
     Indication: PRODUCT USED FOR UNKNOWN INDICATION
     Dosage: UNKNOWN
     Dates: end: 201707
  3. LENVIMA [Suspect]
     Active Substance: LENVATINIB
     Indication: THYROID CANCER
     Route: 048
     Dates: start: 20170119, end: 20170624
  4. LEVOTHYROXINE. [Concomitant]
     Active Substance: LEVOTHYROXINE

REACTIONS (17)
  - Constipation [Not Recovered/Not Resolved]
  - Abdominal discomfort [Not Recovered/Not Resolved]
  - Decreased appetite [Not Recovered/Not Resolved]
  - Sinusitis [Recovering/Resolving]
  - Skin exfoliation [Not Recovered/Not Resolved]
  - Nausea [Not Recovered/Not Resolved]
  - Oral pain [Not Recovered/Not Resolved]
  - Oesophagitis [Not Recovered/Not Resolved]
  - Diabetes mellitus [Not Recovered/Not Resolved]
  - Diarrhoea [Not Recovered/Not Resolved]
  - Weight decreased [Not Recovered/Not Resolved]
  - Fungal infection [Recovered/Resolved]
  - Clostridium difficile infection [Recovered/Resolved]
  - Stomatitis [Not Recovered/Not Resolved]
  - Blood thyroid stimulating hormone increased [Not Recovered/Not Resolved]
  - Fatigue [Not Recovered/Not Resolved]
  - Thyroglobulin decreased [Recovering/Resolving]

NARRATIVE: CASE EVENT DATE: 2017
